FAERS Safety Report 18931069 (Version 1)
Quarter: 2021Q1

REPORT INFORMATION
  Report Type: Spontaneous
  Country: US (occurrence: US)
  Receive Date: 20210223
  Receipt Date: 20210223
  Transmission Date: 20210420
  Serious: Yes (Hospitalization, Other)
  Sender: FDA-Public Use
  Company Number: US-ASTRAZENECA-2021A068421

PATIENT
  Sex: Female

DRUGS (1)
  1. SYMBICORT [Suspect]
     Active Substance: BUDESONIDE\FORMOTEROL FUMARATE DIHYDRATE
     Indication: CHRONIC OBSTRUCTIVE PULMONARY DISEASE
     Dosage: 160/4.5 MCG 2 PUFFS TWICE EACH DAY
     Route: 055

REACTIONS (10)
  - Bronchitis [Recovering/Resolving]
  - Memory impairment [Unknown]
  - General physical health deterioration [Not Recovered/Not Resolved]
  - Peripheral swelling [Unknown]
  - Pneumonia [Recovering/Resolving]
  - Cognitive disorder [Not Recovered/Not Resolved]
  - Fatigue [Unknown]
  - Laziness [Unknown]
  - Product use issue [Unknown]
  - Drug delivery system issue [Unknown]
